FAERS Safety Report 15436535 (Version 2)
Quarter: 2018Q3

REPORT INFORMATION
  Report Type: Spontaneous
  Country: GR (occurrence: GR)
  Receive Date: 20180927
  Receipt Date: 20180928
  Transmission Date: 20181010
  Serious: Yes (Death, Other)
  Sender: FDA-Public Use
  Company Number: GR-PFIZER INC-2018379737

PATIENT
  Age: 79 Year
  Sex: Female

DRUGS (3)
  1. GEMTUZUMAB OZOGAMICIN [Suspect]
     Active Substance: GEMTUZUMAB OZOGAMICIN
     Dosage: 15 MG, UNK
     Dates: start: 20100119
  2. GEMTUZUMAB OZOGAMICIN [Suspect]
     Active Substance: GEMTUZUMAB OZOGAMICIN
     Indication: ACUTE MYELOID LEUKAEMIA
     Dosage: 15 MG, UNK
     Dates: start: 20100105
  3. T4 [Concomitant]
     Active Substance: LEVOTHYROXINE
     Indication: HYPOTHYROIDISM
     Dosage: UNK

REACTIONS (10)
  - Basophil count increased [Unknown]
  - Neoplasm progression [Unknown]
  - Lymphocyte count increased [Unknown]
  - White blood cell count decreased [Recovered/Resolved]
  - Haematocrit decreased [Unknown]
  - Platelet count decreased [Unknown]
  - Splenomegaly [Unknown]
  - Haemoglobin decreased [Unknown]
  - Cardio-respiratory arrest [Fatal]
  - Haematocrit increased [Recovering/Resolving]

NARRATIVE: CASE EVENT DATE: 20100204
